FAERS Safety Report 4930351-3 (Version None)
Quarter: 2006Q1

REPORT INFORMATION
  Report Type: 
  Country: None (occurrence: None)
  Receive Date: 20060302
  Receipt Date: 20040811
  Transmission Date: 20060701
  Serious: Yes (Hospitalization)
  Sender: FDA-Public Use
  Company Number: US-GLAXOSMITHKLINE-A0513424B

PATIENT
  Age: 57 Year
  Sex: Male
  Weight: 102.4 kg

DRUGS (1)
  1. ROPINIROLE [Suspect]
     Indication: PARKINSON'S DISEASE
     Route: 048
     Dates: start: 20040415

REACTIONS (5)
  - BALANCE DISORDER [None]
  - CELLULITIS [None]
  - ERYTHEMA [None]
  - FALL [None]
  - OEDEMA PERIPHERAL [None]
